FAERS Safety Report 4861176-5 (Version None)
Quarter: 2005Q4

REPORT INFORMATION
  Report Type: 
  Country: None (occurrence: None)
  Receive Date: 20051216
  Receipt Date: 20051215
  Transmission Date: 20060501
  Serious: Yes (Death)
  Sender: FDA-Public Use
  Company Number: HQWYE622301APR05

PATIENT
  Age: 25 Year
  Sex: Male

DRUGS (5)
  1. INDERAL [Suspect]
     Route: 048
  2. INSULIN [Concomitant]
  3. COCAINE [Suspect]
  4. UNSPECIFIED ANABOLIC STEROID [Suspect]
  5. VIAGRA [Suspect]

REACTIONS (1)
  - SELF-MEDICATION [None]
